FAERS Safety Report 19434095 (Version 1)
Quarter: 2021Q2

REPORT INFORMATION
  Report Type: Spontaneous
  Country: US (occurrence: US)
  Receive Date: 20210617
  Receipt Date: 20210617
  Transmission Date: 20210717
  Serious: No
  Sender: FDA-Public Use
  Company Number: US-BAUSCH-BL-2021-020003

PATIENT
  Age: 70 Year
  Sex: Male

DRUGS (3)
  1. PRIMIDONE. [Suspect]
     Active Substance: PRIMIDONE
     Indication: ESSENTIAL TREMOR
     Dosage: FOR FIRST 2 WEEKS
     Route: 048
     Dates: start: 202012
  2. PRIMIDONE. [Suspect]
     Active Substance: PRIMIDONE
     Dosage: AFTER THE FIRST 2 WEEKS OF STARTING THE MEDICATION, DOSE INCREASED
     Route: 048
  3. PRIMIDONE. [Suspect]
     Active Substance: PRIMIDONE
     Dosage: CURRENTLY ON 250 MG 1 TABLET TWICE DAILY
     Route: 048

REACTIONS (4)
  - Weight decreased [Unknown]
  - Drug titration error [Unknown]
  - Depression [Unknown]
  - Libido decreased [Unknown]

NARRATIVE: CASE EVENT DATE: 202012
